FAERS Safety Report 8829764 (Version 1)
Quarter: 2012Q4

REPORT INFORMATION
  Report Type: 
  Country: US (occurrence: US)
  Receive Date: 20121008
  Receipt Date: 20121008
  Transmission Date: 20130627
  Serious: Yes (Other)
  Sender: FDA-Public Use
  Company Number: US-ROCHE-1130862

PATIENT
  Sex: Female

DRUGS (5)
  1. RITUXAN [Suspect]
     Indication: RHEUMATOID ARTHRITIS
     Route: 065
  2. RITUXAN [Suspect]
     Indication: ARTHRITIS
  3. RITUXAN [Suspect]
     Indication: POLYARTHRITIS
  4. METHOTREXATE [Concomitant]
  5. ANTI-TNF DRUG (UNK INGREDIENTS) [Concomitant]

REACTIONS (2)
  - Bronchiectasis [Unknown]
  - Pain [Unknown]
